FAERS Safety Report 5099906-2 (Version None)
Quarter: 2006Q3

REPORT INFORMATION
  Report Type: 
  Country: None (occurrence: None)
  Receive Date: 20060906
  Receipt Date: 20060906
  Transmission Date: 20061208
  Serious: No
  Sender: FDA-Public Use
  Company Number: None

PATIENT
  Age: 75 Year
  Sex: Female
  Weight: 66.6788 kg

DRUGS (1)
  1. METHYLPREDNISOLONE ACETATE [Suspect]
     Indication: TRACHEITIS
     Dosage: GRADUATED DOSE  SEVERAL X A DAY
     Dates: start: 20051129, end: 20051130

REACTIONS (1)
  - DIZZINESS [None]
